FAERS Safety Report 25820010 (Version 4)
Quarter: 2025Q4

REPORT INFORMATION
  Report Type: Report from Study
  Country: EU (occurrence: EU)
  Receive Date: 20250918
  Receipt Date: 20251121
  Transmission Date: 20260117
  Serious: Yes (Other)
  Sender: JOHNSON AND JOHNSON
  Company Number: EU-JNJFOC-20250922068

PATIENT
  Age: 40 Year
  Sex: Female

DRUGS (15)
  1. ESKETAMINE [Suspect]
     Active Substance: ESKETAMINE
     Indication: Depression
     Dosage: 28 MG, 1 DOSE
     Route: 045
     Dates: start: 20230405, end: 20230405
  2. ESKETAMINE [Suspect]
     Active Substance: ESKETAMINE
     Dosage: 56 MG, 2 DOSES (11-APR-2023, 13-APR-2023)
     Route: 045
     Dates: start: 20230411, end: 20230413
  3. ESKETAMINE [Suspect]
     Active Substance: ESKETAMINE
     Dosage: 84 MG, 11 DOSES (18-APR-2023, 20-APR-2023, 25-APR-2023, 28-APR-2023, 02-MAY-2023, 04-MAY-2023, 10-MA
     Route: 045
     Dates: start: 20230418, end: 20230605
  4. ESKETAMINE [Suspect]
     Active Substance: ESKETAMINE
     Dosage: 56 MG, 13 DOSES (12-JUN-2023, 19-JUN-2023, 26-JUN-2023, 03-JUL-2023, 17-JUL-2023, 24-JUL-2023, 31-JU
     Route: 045
     Dates: start: 20230612, end: 20230918
  5. ESKETAMINE [Suspect]
     Active Substance: ESKETAMINE
     Dosage: 84 MG, 29 DOSES (25-SEP-2023, 02-OCT-2023, 09-OCT-2023, 23-OCT-2023, 30-OCT-2023, 06-NOV-2023, 13-NO
     Route: 045
     Dates: start: 20230925, end: 20240402
  6. ESKETAMINE [Suspect]
     Active Substance: ESKETAMINE
     Dosage: 56 MG, 1 DOSE (08-APR-2024)
     Route: 045
     Dates: start: 20240408, end: 20240408
  7. ESKETAMINE [Suspect]
     Active Substance: ESKETAMINE
     Dosage: 84 MG, 19 DOSES (15-APR-2024, 22-APR-2024,  29-APR-2024, 06-MAY-2024, 13-MAY-2024, 21-MAY-2024, 27-M
     Route: 045
     Dates: start: 20240415, end: 20240819
  8. ESKETAMINE [Suspect]
     Active Substance: ESKETAMINE
     Dosage: 56 MG, 3 DOSES (26-AUG-2024, 02-SEP-2024, 09-SEP-2024)
     Route: 045
     Dates: start: 20240826, end: 20240909
  9. ESKETAMINE [Suspect]
     Active Substance: ESKETAMINE
     Dosage: 84 MG, 4 DOSES (16-SEP-2024, 23-SEP-2024, 30-SEP-2024, 07-OCT-2024)
     Route: 045
     Dates: start: 20240916, end: 20241007
  10. ESKETAMINE [Suspect]
     Active Substance: ESKETAMINE
     Dosage: 56 MG, 6 DOSES (14-OCT-2024, 21-OCT-2024, 28-OCT-2024, 04-NOV-2024, 11-NOV-2024, 18-NOV-2024)
     Route: 045
     Dates: start: 20241014, end: 20241118
  11. ESKETAMINE [Suspect]
     Active Substance: ESKETAMINE
     Dosage: 84 MG, 1 DOSE (25-NOV-2024)
     Route: 045
     Dates: start: 20241125, end: 20241125
  12. ESKETAMINE [Suspect]
     Active Substance: ESKETAMINE
     Dosage: 56 MG, 2 DOSES (02-DEC-2024, 09-DEC-2024)
     Route: 045
     Dates: start: 20241202, end: 20241209
  13. ESKETAMINE [Suspect]
     Active Substance: ESKETAMINE
     Dosage: 84 MG, 21 DOSES (16-DEC-2024, 23-DEC-2024, 30-DEC-2024, 13-JAN-2025, 20-JAN-2025, 27-JAN-2025, 10-FE
     Route: 045
     Dates: start: 20241216, end: 20250509
  14. ESKETAMINE [Suspect]
     Active Substance: ESKETAMINE
     Dosage: ^56 MG, 1 TOTAL DOSE (12-MAY-2025)
     Route: 045
     Dates: start: 20250512, end: 20250512
  15. ESKETAMINE [Suspect]
     Active Substance: ESKETAMINE
     Dosage: ^84 MG, 22 DOSES (19-MAY-2025, 26-MAY-2025, 30-MAY-2025,   02-JUN-2025, 06-JUN-2025, 10-JUN-2025, 18
     Route: 045
     Dates: start: 20250519, end: 20250819

REACTIONS (4)
  - Suicidal ideation [Recovered/Resolved]
  - Major depression [Recovered/Resolved]
  - Suicidal ideation [Recovered/Resolved]
  - Accidental overdose [Recovered/Resolved]

NARRATIVE: CASE EVENT DATE: 20250101
